FAERS Safety Report 10061513 (Version 1)
Quarter: 2014Q2

REPORT INFORMATION
  Report Type: Spontaneous
  Country: SG (occurrence: SG)
  Receive Date: 20140407
  Receipt Date: 20140407
  Transmission Date: 20141212
  Serious: Yes (Death, Hospitalization)
  Sender: FDA-Public Use
  Company Number: SG-JNJFOC-20140401108

PATIENT
  Age: 60 Year
  Sex: 0

DRUGS (5)
  1. DOXORUBICIN [Suspect]
     Indication: ANAPLASTIC LARGE-CELL LYMPHOMA
     Route: 042
  2. VINCRISTINE [Suspect]
     Indication: ANAPLASTIC LARGE-CELL LYMPHOMA
     Route: 065
  3. PREDNISOLONE [Suspect]
     Indication: ANAPLASTIC LARGE-CELL LYMPHOMA
     Route: 065
  4. CYCLOPHOSPHAMIDE [Suspect]
     Indication: ANAPLASTIC LARGE-CELL LYMPHOMA
     Route: 065
  5. GRANULOCYTE COLONY-STIMULATING FACTOR [Concomitant]
     Indication: PROPHYLAXIS
     Route: 065

REACTIONS (1)
  - Febrile neutropenia [Fatal]
